FAERS Safety Report 7167832-0 (Version None)
Quarter: 2010Q4

REPORT INFORMATION
  Report Type: 
  Country: None (occurrence: None)
  Receive Date: 20101216
  Receipt Date: 20101210
  Transmission Date: 20110411
  Serious: Yes (Other)
  Sender: FDA-Public Use
  Company Number: US-AMGEN-USASP2010008794

PATIENT

DRUGS (2)
  1. NEULASTA [Suspect]
     Indication: NEUTROPENIA
  2. CHEMOTHERAPEUTICS NOS [Concomitant]

REACTIONS (1)
  - DRUG INEFFECTIVE [None]
